FAERS Safety Report 4661769-4 (Version None)
Quarter: 2005Q2

REPORT INFORMATION
  Report Type: 
  Country: None (occurrence: None)
  Receive Date: 20050511
  Receipt Date: 20050511
  Transmission Date: 20051028
  Serious: Yes (Life-Threatening)
  Sender: FDA-Public Use
  Company Number: None

PATIENT
  Sex: Male
  Weight: 73.6 kg

DRUGS (4)
  1. TACROLIMUS [Suspect]
     Indication: HEART TRANSPLANT
     Dosage: 4MG PO BID
     Route: 048
     Dates: start: 20001218, end: 20041107
  2. SIROLIMUS [Concomitant]
  3. GANCICLOVIR [Concomitant]
  4. VALGANCICLOVIR [Concomitant]

REACTIONS (1)
  - THROMBOTIC THROMBOCYTOPENIC PURPURA [None]
